FAERS Safety Report 5929933-1 (Version None)
Quarter: 2008Q4

REPORT INFORMATION
  Report Type: 
  Country: None (occurrence: None)
  Receive Date: 20081021
  Receipt Date: 20081010
  Transmission Date: 20090506
  Serious: Yes (Hospitalization)
  Sender: FDA-Public Use
  Company Number: 2008BI027325

PATIENT
  Age: 42 Year
  Sex: Female

DRUGS (3)
  1. AVONEX [Suspect]
     Indication: MULTIPLE SCLEROSIS
     Dosage: 30 UG;QW;IM
     Route: 030
     Dates: start: 20070501, end: 20080603
  2. . [Concomitant]
  3. . [Concomitant]

REACTIONS (5)
  - ANAESTHETIC COMPLICATION [None]
  - BURNING SENSATION [None]
  - INFECTED CYST [None]
  - PAIN IN EXTREMITY [None]
  - SCHIZOPHRENIFORM DISORDER [None]
